FAERS Safety Report 5960121-9 (Version None)
Quarter: 2008Q4

REPORT INFORMATION
  Report Type: 
  Country: None (occurrence: None)
  Receive Date: 20081120
  Receipt Date: 20081111
  Transmission Date: 20090506
  Serious: Yes (Hospitalization)
  Sender: FDA-Public Use
  Company Number: JP-JNJCH-2008055011

PATIENT
  Age: 48 Year
  Sex: Male

DRUGS (2)
  1. CETIRIZINE HYDROCHLORIDE [Suspect]
     Indication: URTICARIA CHRONIC
     Dosage: TEXT:1 DF
     Route: 048
     Dates: start: 20081027, end: 20081105
  2. AMBROXOL [Concomitant]
     Indication: PRODUCTIVE COUGH
     Dosage: TEXT:3 DF
     Route: 048
     Dates: start: 20081024, end: 20081105

REACTIONS (1)
  - NEUTROPENIA [None]
